FAERS Safety Report 26189618 (Version 2)
Quarter: 2025Q4

REPORT INFORMATION
  Report Type: Spontaneous
  Country: US (occurrence: US)
  Receive Date: 20251223
  Receipt Date: 20251224
  Transmission Date: 20260117
  Serious: Yes (Death, Hospitalization)
  Sender: TEVA
  Company Number: US-TEVA-VS-3405263

PATIENT
  Age: 71 Year
  Sex: Female

DRUGS (4)
  1. AJOVY [Suspect]
     Active Substance: FREMANEZUMAB-VFRM
     Indication: Migraine
     Dosage: FORM STRENGTH: 225/1.5MG/ML
     Route: 058
     Dates: start: 20250106
  2. AJOVY [Suspect]
     Active Substance: FREMANEZUMAB-VFRM
     Indication: Migraine with aura
  3. AJOVY [Suspect]
     Active Substance: FREMANEZUMAB-VFRM
     Indication: Essential tremor
  4. AJOVY [Suspect]
     Active Substance: FREMANEZUMAB-VFRM
     Indication: Transient ischaemic attack

REACTIONS (4)
  - Death [Fatal]
  - Inappropriate schedule of product administration [Unknown]
  - Product use in unapproved indication [Unknown]
  - Hospitalisation [Unknown]

NARRATIVE: CASE EVENT DATE: 20250101
